FAERS Safety Report 19036880 (Version 1)
Quarter: 2021Q1

REPORT INFORMATION
  Report Type: Spontaneous
  Country: US (occurrence: US)
  Receive Date: 20210319
  Receipt Date: 20210319
  Transmission Date: 20210420
  Serious: No
  Sender: FDA-Public Use
  Company Number: None

PATIENT
  Age: 70 Year
  Sex: Male

DRUGS (1)
  1. TALTZ [Suspect]
     Active Substance: IXEKIZUMAB
     Indication: PSORIASIS
     Route: 058
     Dates: start: 20191224

REACTIONS (4)
  - Device malfunction [None]
  - Device delivery system issue [None]
  - Injection site haemorrhage [None]
  - Injection site pain [None]

NARRATIVE: CASE EVENT DATE: 20210226
